FAERS Safety Report 4951791-2 (Version None)
Quarter: 2006Q1

REPORT INFORMATION
  Report Type: 
  Country: None (occurrence: None)
  Receive Date: 20060323
  Receipt Date: 20060313
  Transmission Date: 20060701
  Serious: Yes (Disabling)
  Sender: FDA-Public Use
  Company Number: 2006GB00456

PATIENT
  Age: 25 Year
  Sex: Male

DRUGS (1)
  1. SEROQUEL [Suspect]
     Indication: PARANOIA
     Route: 048
     Dates: start: 20030101

REACTIONS (4)
  - DIZZINESS POSTURAL [None]
  - ERECTILE DYSFUNCTION [None]
  - LIBIDO DECREASED [None]
  - LOSS OF LIBIDO [None]
